APPROVED DRUG PRODUCT: INFANT'S ADVIL
Active Ingredient: IBUPROFEN
Strength: 50MG/1.25ML
Dosage Form/Route: SUSPENSION/DROPS;ORAL
Application: N020812 | Product #002
Applicant: HALEON US HOLDINGS LLC
Approved: Jan 12, 2000 | RLD: Yes | RS: Yes | Type: OTC